FAERS Safety Report 5623020-8 (Version None)
Quarter: 2008Q1

REPORT INFORMATION
  Report Type: 
  Country: None (occurrence: None)
  Receive Date: 20080212
  Receipt Date: 20080129
  Transmission Date: 20080703
  Serious: Yes (Hospitalization)
  Sender: FDA-Public Use
  Company Number: US-AMGEN-STX263070

PATIENT
  Sex: Female

DRUGS (2)
  1. ENBREL [Suspect]
     Indication: RHEUMATOID ARTHRITIS
     Route: 058
     Dates: start: 19981115
  2. METHOTREXATE [Concomitant]
     Route: 065
     Dates: start: 19980101

REACTIONS (4)
  - APATHY [None]
  - FINGER DEFORMITY [None]
  - JOINT INSTABILITY [None]
  - JOINT STIFFNESS [None]
